FAERS Safety Report 21509742 (Version 1)
Quarter: 2022Q4

REPORT INFORMATION
  Report Type: Report from Study
  Country: FR (occurrence: FR)
  Receive Date: 20221026
  Receipt Date: 20221026
  Transmission Date: 20230112
  Serious: Yes (Other)
  Sender: FDA-Public Use
  Company Number: FR-JAZZ-2021-FR-022137

PATIENT

DRUGS (1)
  1. DEFITELIO [Suspect]
     Active Substance: DEFIBROTIDE SODIUM
     Indication: Venoocclusive disease
     Dosage: UNKNOWN DOSE AND FREQUENCY
     Route: 065
     Dates: start: 20210924

REACTIONS (2)
  - Hepatic encephalopathy [Recovered/Resolved]
  - Intra-abdominal haematoma [Unknown]

NARRATIVE: CASE EVENT DATE: 20210924
